FAERS Safety Report 7281418-9 (Version None)
Quarter: 2011Q1

REPORT INFORMATION
  Report Type: 
  Country: None (occurrence: None)
  Receive Date: 20110208
  Receipt Date: 20110127
  Transmission Date: 20110831
  Serious: Yes (Other)
  Sender: FDA-Public Use
  Company Number: DE-ELI_LILLY_AND_COMPANY-DE201101006982

PATIENT
  Age: 33 Year
  Sex: Male

DRUGS (1)
  1. CIALIS [Suspect]
     Dosage: 10 MG, UNK
     Route: 048

REACTIONS (6)
  - OPTIC ISCHAEMIC NEUROPATHY [None]
  - EYELID OEDEMA [None]
  - EYE DISORDER [None]
  - VISION BLURRED [None]
  - OCULAR HYPERAEMIA [None]
  - VISUAL FIELD DEFECT [None]
